FAERS Safety Report 20925397 (Version 1)
Quarter: 2022Q2

REPORT INFORMATION
  Report Type: Spontaneous
  Country: US (occurrence: US)
  Receive Date: 20220607
  Receipt Date: 20220607
  Transmission Date: 20220721
  Serious: No
  Sender: FDA-Public Use
  Company Number: US-UPSHER-SMITH LABORATORIES, LLC-2021USL00493

PATIENT
  Sex: Female

DRUGS (10)
  1. PACERONE [Suspect]
     Active Substance: AMIODARONE HYDROCHLORIDE
     Indication: Ventricular tachycardia
     Dosage: 200 MG, 2X/DAY
     Dates: start: 20210524, end: 20210606
  2. PACERONE [Suspect]
     Active Substance: AMIODARONE HYDROCHLORIDE
     Indication: Atrial fibrillation
     Dosage: 200 MG, 1X/DAY IN THE MORNING WITH FOOD
     Dates: start: 20210607, end: 20210613
  3. PACERONE [Suspect]
     Active Substance: AMIODARONE HYDROCHLORIDE
     Dosage: UNK (A FEW THIS WEEK)
     Dates: start: 202106, end: 2021
  4. PACERONE [Suspect]
     Active Substance: AMIODARONE HYDROCHLORIDE
     Dosage: 200 MG, 1X/DAY IN THE MORNING WITH FOOD
     Dates: start: 2021
  5. ELIQUIS [Concomitant]
     Active Substance: APIXABAN
  6. CANNABIDIOL\HERBALS [Concomitant]
     Active Substance: CANNABIDIOL\HERBALS
  7. VITAMIN C [Concomitant]
     Active Substance: ASCORBIC ACID
  8. ONE-A-DAY NOS [Concomitant]
     Active Substance: MINERALS\VITAMINS
  9. HERBALS\TURMERIC [Concomitant]
     Active Substance: HERBALS\TURMERIC
  10. DIETARY SUPPLEMENT [Concomitant]
     Active Substance: DIETARY SUPPLEMENT

REACTIONS (11)
  - Pain [Unknown]
  - Asthenia [Not Recovered/Not Resolved]
  - Angina pectoris [Unknown]
  - Feeling abnormal [Recovering/Resolving]
  - Crying [Unknown]
  - Emotional disorder [Not Recovered/Not Resolved]
  - Dyspnoea [Not Recovered/Not Resolved]
  - Coordination abnormal [Recovering/Resolving]
  - Vision blurred [Recovering/Resolving]
  - Pruritus [Recovered/Resolved]
  - Drug ineffective for unapproved indication [Recovered/Resolved]

NARRATIVE: CASE EVENT DATE: 20210101
